FAERS Safety Report 5258594-2 (Version None)
Quarter: 2007Q1

REPORT INFORMATION
  Report Type: 
  Country: None (occurrence: None)
  Receive Date: 20070305
  Receipt Date: 20070220
  Transmission Date: 20070707
  Serious: Yes (Hospitalization)
  Sender: FDA-Public Use
  Company Number: 237452

PATIENT

DRUGS (5)
  1. MABTHERA(RITUXIMAB) CONC FOR SOLUTION FOR INFUSION [Suspect]
     Indication: RHEUMATOID ARTHRITIS
     Dosage: 1 G, INTRAVENOUS
     Route: 042
     Dates: start: 20070109
  2. PREDNISOLONE [Suspect]
     Indication: RHEUMATOID ARTHRITIS
     Dosage: 5 MG, QD, ORAL
     Route: 048
     Dates: start: 20060908
  3. DURAGESIC-100 [Suspect]
     Indication: RHEUMATOID ARTHRITIS
     Dosage: TRANSDERMAL
     Route: 062
     Dates: start: 20060901
  4. NEXIUM [Suspect]
     Indication: DRUG USE FOR UNKNOWN INDICATION
     Dosage: 2 TABLET, QD, ORAL
     Route: 048
     Dates: start: 20060901
  5. SUCRALFATE [Suspect]
     Indication: DRUG USE FOR UNKNOWN INDICATION
     Dosage: ORAL
     Route: 048
     Dates: start: 20060901

REACTIONS (1)
  - CEREBRAL INFARCTION [None]
